FAERS Safety Report 17067519 (Version 1)
Quarter: 2019Q4

REPORT INFORMATION
  Report Type: Spontaneous
  Country: FR (occurrence: FR)
  Receive Date: 20191122
  Receipt Date: 20191122
  Transmission Date: 20200122
  Serious: Yes (Hospitalization)
  Sender: FDA-Public Use
  Company Number: FR-BAUSCH-BL-2019-062299

PATIENT
  Age: 48 Year
  Sex: Male

DRUGS (3)
  1. BROMAZEPAM [Suspect]
     Active Substance: BROMAZEPAM
     Indication: TOXICITY TO VARIOUS AGENTS
     Dosage: 1 (UNSPECIFIED DOSING UNITS) IN TOTAL
     Route: 048
     Dates: start: 20180216, end: 20180216
  2. VENLAFAXINE [Suspect]
     Active Substance: VENLAFAXINE HYDROCHLORIDE
     Indication: TOXICITY TO VARIOUS AGENTS
     Dosage: 1 (UNSPECIFIED DOSING UNITS) IN TOTAL
     Route: 048
     Dates: start: 20180216, end: 20180216
  3. TRANXENE [Suspect]
     Active Substance: CLORAZEPATE DIPOTASSIUM
     Indication: TOXICITY TO VARIOUS AGENTS
     Dosage: 1 (UNSPECIFIED DOSING UNITS) IN TOTAL
     Route: 048
     Dates: start: 20180216, end: 20180216

REACTIONS (2)
  - Toxicity to various agents [Recovered/Resolved]
  - Psychomotor skills impaired [Recovered/Resolved]

NARRATIVE: CASE EVENT DATE: 20180216
